FAERS Safety Report 18755106 (Version 1)
Quarter: 2021Q1

REPORT INFORMATION
  Report Type: Spontaneous
  Country: US (occurrence: US)
  Receive Date: 20210116
  Receipt Date: 20210116
  Transmission Date: 20210419
  Serious: Yes (Other)
  Sender: FDA-Public Use
  Company Number: None

PATIENT
  Age: 56 Year
  Sex: Male
  Weight: 69 kg

DRUGS (1)
  1. BAMLANIVIMAB. [Suspect]
     Active Substance: BAMLANIVIMAB
     Indication: COVID-19
     Dosage: ?          OTHER FREQUENCY:X1;?
     Route: 041
     Dates: start: 20210115, end: 20210115

REACTIONS (9)
  - Fear [None]
  - Anaphylactic reaction [None]
  - Tearfulness [None]
  - Infusion related reaction [None]
  - Anxiety [None]
  - Tachycardia [None]
  - Dyspnoea [None]
  - Rhonchi [None]
  - Throat tightness [None]

NARRATIVE: CASE EVENT DATE: 20210115
